FAERS Safety Report 22006742 (Version 1)
Quarter: 2023Q1

REPORT INFORMATION
  Report Type: Spontaneous
  Country: FI (occurrence: FI)
  Receive Date: 20230217
  Receipt Date: 20230217
  Transmission Date: 20230418
  Serious: Yes (Other)
  Sender: FDA-Public Use
  Company Number: FI-MYLANLABS-2023M1018328

PATIENT
  Age: 39 Year
  Sex: Female

DRUGS (11)
  1. CLOZAPINE [Interacting]
     Active Substance: CLOZAPINE
     Indication: Schizophrenia
     Dosage: 425 MILLIGRAM, QD
     Route: 065
     Dates: start: 201905
  2. CLOZAPINE [Interacting]
     Active Substance: CLOZAPINE
     Dosage: 475 MILLIGRAM, QD
     Route: 065
  3. DISULFIRAM [Interacting]
     Active Substance: DISULFIRAM
     Indication: Alcohol use disorder
     Dosage: 200 MILLIGRAM, QD
     Route: 065
  4. VALPROATE SODIUM [Concomitant]
     Active Substance: VALPROATE SODIUM
     Indication: Epilepsy
     Dosage: 2000 MILLIGRAM, QD, FOR OVER 10 YEARS
     Route: 065
  5. BISOPROLOL [Concomitant]
     Active Substance: BISOPROLOL
     Indication: Product used for unknown indication
     Dosage: 2.5 MILLIGRAM, QD
     Route: 065
  6. CLOBAZAM [Concomitant]
     Active Substance: CLOBAZAM
     Indication: Product used for unknown indication
     Dosage: 20 MILLIGRAM, QD
     Route: 065
  7. PERPHENAZINE DECANOATE [Concomitant]
     Active Substance: PERPHENAZINE DECANOATE
     Indication: Product used for unknown indication
     Dosage: 108 MILLIGRAM, BIWEEKLY,LONG-ACTING INJECTABLE
     Route: 042
  8. VITAMINS [Concomitant]
     Active Substance: VITAMINS
     Indication: Vitamin supplementation
     Dosage: UNK
     Route: 065
  9. MAGNESIUM [Concomitant]
     Active Substance: MAGNESIUM
     Indication: Product used for unknown indication
     Dosage: UNK
     Route: 065
  10. PROPRANOLOL [Concomitant]
     Active Substance: PROPRANOLOL HYDROCHLORIDE
     Indication: Product used for unknown indication
     Dosage: UNK
     Route: 065
  11. CETIRIZINE [Concomitant]
     Active Substance: CETIRIZINE HYDROCHLORIDE
     Indication: Hypersensitivity
     Dosage: UNK
     Route: 065

REACTIONS (2)
  - Antipsychotic drug level increased [Recovered/Resolved]
  - Drug interaction [Recovered/Resolved]
